FAERS Safety Report 19247682 (Version 1)
Quarter: 2021Q2

REPORT INFORMATION
  Report Type: Spontaneous
  Country: PL (occurrence: PL)
  Receive Date: 20210512
  Receipt Date: 20210512
  Transmission Date: 20210717
  Serious: Yes (Hospitalization, Other)
  Sender: FDA-Public Use
  Company Number: PL-TEVA-2021-PL-1909616

PATIENT
  Age: 70 Year
  Sex: Male

DRUGS (16)
  1. TORASEMIDE [Suspect]
     Active Substance: TORSEMIDE
     Indication: PRODUCT USED FOR UNKNOWN INDICATION
     Dosage: 1 DOSAGE FORMS DAILY; THERAPY START DATE ASKU, THERAPY END DATE ASKU
     Route: 065
  2. SACUBITRI/ VALSARTAN [Suspect]
     Active Substance: SACUBITRIL\VALSARTAN
     Dosage: 49/ 51MG 2 X1 TAB,THERAPY START DATE ASKU, THERAPY END DATE ASKU
     Route: 065
  3. RIVAROXABAN [Suspect]
     Active Substance: RIVAROXABAN
     Dosage: 1 DOSAGE FORMS DAILY; THERAPY START DATE ASKU, THERAPY END DATE ASKU, QD (STRENGTH 20 MG)
     Route: 065
  4. KALIPOZ [Concomitant]
     Active Substance: POTASSIUM CHLORIDE
     Indication: PRODUCT USED FOR UNKNOWN INDICATION
     Dosage: 1 DOSAGE FORMS DAILY; THERAPY START DATE ASKU, THERAPY END DATE ASKU
     Route: 065
  5. ALLOPURINOL. [Suspect]
     Active Substance: ALLOPURINOL
     Indication: PRODUCT USED FOR UNKNOWN INDICATION
     Dosage: 2 DOSAGE FORMS DAILY; QD (100MG AS REPORTED),THERAPY START DATE ASKU, THERAPY END DATE ASKU
     Route: 065
  6. EPLERENONE. [Concomitant]
     Active Substance: EPLERENONE
     Indication: PRODUCT USED FOR UNKNOWN INDICATION
     Dosage: 1 DOSAGE FORMS DAILY; THERAPY START DATE ASKU, THERAPY END DATE ASKU
     Route: 065
  7. RAMIPRIL. [Suspect]
     Active Substance: RAMIPRIL
     Indication: PRODUCT USED FOR UNKNOWN INDICATION
     Dosage: 1 DOSAGE FORMS DAILY; THERAPY START DATE ASKU, THERAPY END DATE ASKU
     Route: 065
  8. METOPROLOL SALT NOT SPECIFIED [Suspect]
     Active Substance: METOPROLOL
     Indication: PRODUCT USED FOR UNKNOWN INDICATION
     Dosage: 2 DOSAGE FORMS DAILY; THERAPY START DATE ASKU, THERAPY END DATE ASKU
     Route: 065
  9. FINASTERIDE. [Concomitant]
     Active Substance: FINASTERIDE
     Indication: PRODUCT USED FOR UNKNOWN INDICATION
     Dosage: 1 DOSAGE FORMS DAILY; THERAPY START DATE ASKU, THERAPY END DATE ASKU
     Route: 065
  10. PANTOPRAZOLE SODIUM. [Suspect]
     Active Substance: PANTOPRAZOLE SODIUM
     Indication: PRODUCT USED FOR UNKNOWN INDICATION
     Dosage: 1 DOSAGE FORMS DAILY; THERAPY START DATE ASKU, THERAPY END DATE ASKU
     Route: 065
  11. SACUBITRI/ VALSARTAN [Suspect]
     Active Substance: SACUBITRIL\VALSARTAN
     Indication: PRODUCT USED FOR UNKNOWN INDICATION
     Dosage: 97/ 103 MG, 2 X1 TAB,THERAPY START DATE ASKU, THERAPY END DATE ASKU
     Route: 065
  12. RIVAROXABAN [Suspect]
     Active Substance: RIVAROXABAN
     Indication: PRODUCT USED FOR UNKNOWN INDICATION
     Dosage: 1 DOSAGE FORMS DAILY; THERAPY START DATE ASKU, THERAPY END DATE ASKU, QD (STRENGTH 15 MG)
     Route: 065
  13. CARVEDILOL. [Concomitant]
     Active Substance: CARVEDILOL
     Indication: PRODUCT USED FOR UNKNOWN INDICATION
     Dosage: 2 DOSAGE FORMS DAILY; THERAPY START DATE ASKU, THERAPY END DATE ASKU
     Route: 065
  14. RAMIPRIL. [Suspect]
     Active Substance: RAMIPRIL
     Dosage: 2 DOSAGE FORMS DAILY; THERAPY START DATE ASKU, THERAPY END DATE ASKU
     Route: 065
  15. ALLOPURINOL. [Suspect]
     Active Substance: ALLOPURINOL
     Dosage: 1 DOSAGE FORMS DAILY; THERAPY START DATE ASKU, THERAPY END DATE ASKU, QD (300MG AS REPORTED)
     Route: 065
  16. DAPAGLIFLOZIN. [Concomitant]
     Active Substance: DAPAGLIFLOZIN
     Indication: PRODUCT USED FOR UNKNOWN INDICATION
     Dosage: 1 DOSAGE FORMS DAILY; THERAPY START DATE ASKU, THERAPY END DATE ASKU
     Route: 065

REACTIONS (9)
  - Dyspnoea exertional [Unknown]
  - Glomerular filtration rate abnormal [Unknown]
  - Urosepsis [Unknown]
  - COVID-19 pneumonia [Unknown]
  - Hypertrophy [Unknown]
  - Cardiac failure chronic [Unknown]
  - Blood pressure decreased [Unknown]
  - Renal atrophy [Unknown]
  - N-terminal prohormone brain natriuretic peptide abnormal [Unknown]
